FAERS Safety Report 14882546 (Version 2)
Quarter: 2019Q1

REPORT INFORMATION
  Report Type: Spontaneous
  Country: US (occurrence: US)
  Receive Date: 20180511
  Receipt Date: 20190129
  Transmission Date: 20190417
  Serious: No
  Sender: FDA-Public Use
  Company Number: US-VIFOR (INTERNATIONAL) INC.-VIT-2017-14477

PATIENT
  Sex: Female

DRUGS (19)
  1. PHENERGAN [Concomitant]
     Active Substance: PROMETHAZINE HYDROCHLORIDE
  2. LOSARTAN POTASSIUM. [Concomitant]
     Active Substance: LOSARTAN POTASSIUM
  3. LACTULOSE. [Concomitant]
     Active Substance: LACTULOSE
  4. SIMVASTATIN. [Concomitant]
     Active Substance: SIMVASTATIN
  5. HYDRALAZINE HCL [Concomitant]
     Active Substance: HYDRALAZINE HYDROCHLORIDE
  6. METOCLOPRAMIDE HCL [Concomitant]
     Active Substance: METOCLOPRAMIDE HYDROCHLORIDE
  7. VELTASSA [Suspect]
     Active Substance: PATIROMER
     Indication: HYPERKALAEMIA
     Route: 048
     Dates: start: 20160609
  8. OMEPRAZOLE. [Concomitant]
     Active Substance: OMEPRAZOLE
  9. LORAZEPAM. [Concomitant]
     Active Substance: LORAZEPAM
  10. PAROXETINE HCL [Concomitant]
     Active Substance: PAROXETINE HYDROCHLORIDE
  11. NORVASC [Concomitant]
     Active Substance: AMLODIPINE BESYLATE
  12. RENVELA [Concomitant]
     Active Substance: SEVELAMER CARBONATE
  13. GABAPENTIN. [Concomitant]
     Active Substance: GABAPENTIN
  14. ASPIRIN. [Concomitant]
     Active Substance: ASPIRIN
  15. FOLIC ACID. [Concomitant]
     Active Substance: FOLIC ACID
  16. FISH OIL + D3 [Concomitant]
  17. GLIPIZIDE. [Concomitant]
     Active Substance: GLIPIZIDE
  18. RENA-VITE [Concomitant]
     Active Substance: ASCORBIC ACID\BIOTIN\CALCIUM PANTOTHENATE\CYANOCOBALAMIN\FOLIC ACID\NIACINAMIDE\PYRIDOXINE HYDROCHLORIDE\RIBOFLAVIN\THIAMINE MONONITRATE
  19. ATIVAN [Concomitant]
     Active Substance: LORAZEPAM

REACTIONS (2)
  - Product dose omission [Unknown]
  - Flatulence [Unknown]
